FAERS Safety Report 7243391-9 (Version None)
Quarter: 2011Q1

REPORT INFORMATION
  Report Type: 
  Country: None (occurrence: None)
  Receive Date: 20110125
  Receipt Date: 20110112
  Transmission Date: 20110831
  Serious: Yes (Death)
  Sender: FDA-Public Use
  Company Number: JP-ELI_LILLY_AND_COMPANY-JP200906002569

PATIENT
  Age: 58 Year
  Sex: Female

DRUGS (5)
  1. GEMZAR [Suspect]
     Dosage: 1000 MG/M2, OTHER
  2. GEMZAR [Suspect]
     Dosage: 1000 MG/M2, OTHER
     Route: 042
  3. GEMZAR [Suspect]
     Route: 042
  4. GEMZAR [Suspect]
     Indication: PANCREATIC CARCINOMA
     Dosage: 1000 MG/M2, OTHER
     Route: 042
  5. TS 1 [Concomitant]
     Indication: PANCREATIC CARCINOMA
     Route: 048

REACTIONS (5)
  - ADVERSE DRUG REACTION [None]
  - WHITE BLOOD CELL COUNT DECREASED [None]
  - NEOPLASM MALIGNANT [None]
  - DECREASED APPETITE [None]
  - MALIGNANT ASCITES [None]
